FAERS Safety Report 21450117 (Version 1)
Quarter: 2022Q4

REPORT INFORMATION
  Report Type: Other
  Country: AU (occurrence: AU)
  Receive Date: 20221013
  Receipt Date: 20221013
  Transmission Date: 20230113
  Serious: Yes (Death)
  Sender: FDA-Public Use
  Company Number: AU-DEXPHARM-20222001

PATIENT
  Age: 41 Year
  Sex: Male

DRUGS (7)
  1. AZATHIOPRINE [Suspect]
     Active Substance: AZATHIOPRINE
     Indication: Immune thrombocytopenia
  2. DILTIAZEM [Suspect]
     Active Substance: DILTIAZEM
     Indication: Immune thrombocytopenia
  3. CYCLOSPORINE [Suspect]
     Active Substance: CYCLOSPORINE
     Indication: Immune thrombocytopenia
  4. DEXAMETHASONE [Suspect]
     Active Substance: DEXAMETHASONE
     Indication: Immune thrombocytopenia
  5. AMIFOSTINE [Suspect]
     Active Substance: AMIFOSTINE
     Indication: Immune thrombocytopenia
     Dosage: IV AMIFOSTINE 400MG ONCE DAILY
  6. RITUXIMAB [Suspect]
     Active Substance: RITUXIMAB
     Indication: Immune thrombocytopenia
     Dosage: 5 DAYS/WEEK FOR 5 CYCLES WITH ONE CYCLE OF RITUXIMAB
  7. ROMIPLOSTIM [Suspect]
     Active Substance: ROMIPLOSTIM
     Indication: Immune thrombocytopenia
     Dosage: SC ROMIPLOSTIM 85MICROG, THREE WEEKLY FOR 10 MONTHS

REACTIONS (3)
  - Thrombocytopenia [Fatal]
  - Ischaemic stroke [Fatal]
  - Drug ineffective [Fatal]
